FAERS Safety Report 4653330-2 (Version None)
Quarter: 2005Q2

REPORT INFORMATION
  Report Type: 
  Country: None (occurrence: None)
  Receive Date: 20050503
  Receipt Date: 20050503
  Transmission Date: 20051028
  Serious: No
  Sender: FDA-Public Use
  Company Number: None

PATIENT
  Age: 68 Year
  Sex: Female
  Weight: 58.9676 kg

DRUGS (2)
  1. MOBEC 7.5 GRAMS  ABBOTT LABS [Suspect]
     Dosage: 1 DAILY
  2. MOBEC 15. GRMS  ABBOTT LABS [Suspect]
     Dosage: 1 DAILY

REACTIONS (2)
  - ARRHYTHMIA [None]
  - HEART RATE IRREGULAR [None]
